FAERS Safety Report 7447963-8 (Version None)
Quarter: 2011Q2

REPORT INFORMATION
  Report Type: 
  Country: None (occurrence: None)
  Receive Date: 20110429
  Receipt Date: 20110425
  Transmission Date: 20111010
  Serious: Yes (Death, Life-Threatening)
  Sender: FDA-Public Use
  Company Number: US-ASTRAZENECA-2011SE08704

PATIENT
  Age: 35 Year
  Sex: Female
  Weight: 62.1 kg

DRUGS (6)
  1. SEROQUEL [Suspect]
     Route: 048
     Dates: end: 20110101
  2. SERTRALINE [Concomitant]
  3. TRAZODONE HCL [Suspect]
     Indication: SLEEP DISORDER
  4. ZOLOFT [Concomitant]
     Indication: ANTIDEPRESSANT THERAPY
  5. TRAZODONE HCL [Suspect]
     Indication: ANTIDEPRESSANT THERAPY
  6. CLONAZEPAM [Suspect]
     Indication: ANXIETY
     Route: 065

REACTIONS (2)
  - COMPLETED SUICIDE [None]
  - MULTIPLE DRUG OVERDOSE [None]
